FAERS Safety Report 13052346 (Version 1)
Quarter: 2016Q4

REPORT INFORMATION
  Report Type: Report from Study
  Country: US (occurrence: US)
  Receive Date: 20161221
  Receipt Date: 20161221
  Transmission Date: 20170207
  Serious: Yes (Hospitalization)
  Sender: FDA-Public Use
  Company Number: US-ACTELION-A-US2016-136089

PATIENT
  Age: 58 Year
  Sex: Male

DRUGS (1)
  1. OPSUMIT [Suspect]
     Active Substance: MACITENTAN
     Indication: PULMONARY ARTERIAL HYPERTENSION
     Dosage: UNK
     Route: 048
     Dates: start: 20141010

REACTIONS (15)
  - Hernia [Recovered/Resolved]
  - Small intestinal obstruction [Recovered/Resolved]
  - Pain in extremity [Not Recovered/Not Resolved]
  - Blood bilirubin increased [Unknown]
  - Dyspnoea [Unknown]
  - Nuchal rigidity [Not Recovered/Not Resolved]
  - Dizziness [Unknown]
  - Pulmonary hypertension [Unknown]
  - Crepitations [Unknown]
  - Hernia repair [Recovered/Resolved]
  - Abdominal pain [Recovered/Resolved]
  - Calcinosis [Not Recovered/Not Resolved]
  - Hypokalaemia [Recovered/Resolved]
  - Abdominal distension [Recovered/Resolved]
  - Right ventricular failure [Unknown]

NARRATIVE: CASE EVENT DATE: 20160113
